FAERS Safety Report 15165445 (Version 1)
Quarter: 2018Q3

REPORT INFORMATION
  Report Type: Spontaneous
  Country: US (occurrence: US)
  Receive Date: 20180621
  Receipt Date: 20180621
  Transmission Date: 20181010
  Serious: Yes (Hospitalization)
  Sender: FDA-Public Use
  Company Number: None

PATIENT
  Age: 3 Year
  Sex: Female
  Weight: 18.8 kg

DRUGS (1)
  1. TRAMETINIB 0.05MG/ML SOLUTION [Suspect]
     Active Substance: TRAMETINIB
     Indication: ASTROCYTOMA
     Route: 048
     Dates: start: 20161202

REACTIONS (5)
  - Rash erythematous [None]
  - Sepsis [None]
  - Staphylococcal scalded skin syndrome [None]
  - Folliculitis [None]
  - Cellulitis [None]

NARRATIVE: CASE EVENT DATE: 20180611
